FAERS Safety Report 6519179-0 (Version None)
Quarter: 2009Q4

REPORT INFORMATION
  Report Type: 
  Country: None (occurrence: None)
  Receive Date: 20091228
  Receipt Date: 20091221
  Transmission Date: 20100525
  Serious: Yes (Other)
  Sender: FDA-Public Use
  Company Number: US-SANOFI-AVENTIS-2009SA010460

PATIENT
  Age: 80 Year
  Sex: Female

DRUGS (7)
  1. PLAVIX [Suspect]
     Indication: STENT PLACEMENT
     Route: 048
     Dates: start: 20091013
  2. PHENOBARB [Concomitant]
     Indication: ESSENTIAL TREMOR
  3. PROPRANOLOL [Concomitant]
     Indication: ESSENTIAL TREMOR
  4. ASPIRIN [Concomitant]
  5. CARBIDOPA-LEVODOPA [Concomitant]
  6. CLONAZEPAM [Concomitant]
  7. LIPITOR [Concomitant]

REACTIONS (7)
  - GASTRITIS EROSIVE [None]
  - GASTROINTESTINAL PAIN [None]
  - NAUSEA [None]
  - OEDEMA PERIPHERAL [None]
  - PAIN IN EXTREMITY [None]
  - SKIN INDURATION [None]
  - VENOUS THROMBOSIS LIMB [None]
